FAERS Safety Report 23579941 (Version 1)
Quarter: 2024Q1

REPORT INFORMATION
  Report Type: Spontaneous
  Country: US (occurrence: None)
  Receive Date: 20240228
  Receipt Date: 20240228
  Transmission Date: 20240410
  Serious: Yes (unspecified)
  Sender: FDA-Public Use
  Company Number: None

PATIENT
  Age: 45 Year
  Sex: Female
  Weight: 101.25 kg

DRUGS (1)
  1. OZEMPIC [Suspect]
     Active Substance: SEMAGLUTIDE
     Indication: Type 2 diabetes mellitus
     Dosage: OTHER FREQUENCY : WEEKLY;?
     Route: 058

REACTIONS (6)
  - Arthralgia [None]
  - Joint stiffness [None]
  - Weight decreased [None]
  - Pain [None]
  - Back pain [None]
  - Alopecia [None]

NARRATIVE: CASE EVENT DATE: 20240101
